FAERS Safety Report 8836621 (Version 1)
Quarter: 2012Q4

REPORT INFORMATION
  Report Type: Spontaneous
  Country: CN (occurrence: None)
  Receive Date: 20121009
  Receipt Date: 20121009
  Transmission Date: 20130627
  Serious: Yes (Hospitalization)
  Sender: FDA-Public Use
  Company Number: CN-MACLEODS PHARMA-000007

PATIENT
  Age: 82 Year
  Sex: Female

DRUGS (1)
  1. LEVOFLOXACINE [Suspect]
     Indication: LUNG INFECTION

REACTIONS (2)
  - Pemphigoid [None]
  - Drug eruption [None]
